FAERS Safety Report 6465081-2 (Version None)
Quarter: 2009Q4

REPORT INFORMATION
  Report Type: 
  Country: None (occurrence: None)
  Receive Date: 20091201
  Receipt Date: 20091117
  Transmission Date: 20100525
  Serious: Yes (Hospitalization)
  Sender: FDA-Public Use
  Company Number: FR-MYLANLABS-2009S1019862

PATIENT
  Sex: Male

DRUGS (5)
  1. CYAMEMAZINE [Suspect]
  2. TRIMEPRAZINE TAB [Suspect]
  3. OXAZEPAM [Suspect]
  4. CITALOPRAM HYDROBROMIDE [Suspect]
  5. VALPROIC ACID [Suspect]

REACTIONS (2)
  - HYPONATRAEMIA [None]
  - OSMOTIC DEMYELINATION SYNDROME [None]
